FAERS Safety Report 12219907 (Version 1)
Quarter: 2016Q1

REPORT INFORMATION
  Report Type: Spontaneous
  Country: US (occurrence: US)
  Receive Date: 20160330
  Receipt Date: 20160330
  Transmission Date: 20160526
  Serious: No
  Sender: FDA-Public Use
  Company Number: US-009507513-1603USA012000

PATIENT
  Sex: Male

DRUGS (1)
  1. EMEND [Suspect]
     Active Substance: APREPITANT
     Dosage: HAD BEEN ON EMEND FOR AN UNSPECIFIED LENGTH OF TIME
     Route: 048

REACTIONS (2)
  - Asthenia [Unknown]
  - Fatigue [Unknown]
